FAERS Safety Report 18868504 (Version 1)
Quarter: 2021Q1

REPORT INFORMATION
  Report Type: Spontaneous
  Country: US (occurrence: US)
  Receive Date: 20210209
  Receipt Date: 20210209
  Transmission Date: 20210420
  Serious: Yes (Hospitalization, Other)
  Sender: FDA-Public Use
  Company Number: US-ASTRAZENECA-2021A024974

PATIENT
  Age: 63 Year
  Sex: Female

DRUGS (1)
  1. SEROQUEL [Suspect]
     Active Substance: QUETIAPINE FUMARATE
     Dosage: 400 MG, 1X/DAY IN THE MORNING FOR FOUR DAYS
     Route: 048
     Dates: start: 20210114

REACTIONS (7)
  - Fall [Unknown]
  - Confusional state [Unknown]
  - Memory impairment [Not Recovered/Not Resolved]
  - Incoherent [Unknown]
  - Renal failure [Not Recovered/Not Resolved]
  - Cerebral disorder [Unknown]
  - COVID-19 [Unknown]

NARRATIVE: CASE EVENT DATE: 20210117
